FAERS Safety Report 10457672 (Version 2)
Quarter: 2014Q3

REPORT INFORMATION
  Report Type: Spontaneous
  Country: US (occurrence: US)
  Receive Date: 20140916
  Receipt Date: 20140925
  Transmission Date: 20150326
  Serious: Yes (Other)
  Sender: FDA-Public Use
  Company Number: US-CUBIST PHARMACEUTICALS, INC.-2014CBST001266

PATIENT

DRUGS (8)
  1. CUBICIN [Suspect]
     Active Substance: DAPTOMYCIN
     Indication: OFF LABEL USE
     Dosage: 6.72 MG/KG, QD
     Route: 042
     Dates: start: 20140827
  2. BACTRIM [Concomitant]
     Active Substance: SULFAMETHOXAZOLE\TRIMETHOPRIM
     Indication: PRODUCT USED FOR UNKNOWN INDICATION
     Dosage: 400/80 MG, BID
     Route: 048
  3. GLIPIZIDE. [Concomitant]
     Active Substance: GLIPIZIDE
     Indication: DIABETES MELLITUS
     Dosage: 5 MG, BID
     Route: 048
  4. LISINOPRIL. [Concomitant]
     Active Substance: LISINOPRIL
     Indication: PRODUCT USED FOR UNKNOWN INDICATION
     Dosage: 10 MG, QD
     Route: 048
  5. CUBICIN [Suspect]
     Active Substance: DAPTOMYCIN
     Indication: OSTEOMYELITIS CHRONIC
     Dosage: 600 MG, QD
     Route: 042
     Dates: start: 20140827
  6. VERAPAMIL                          /00014302/ [Concomitant]
     Active Substance: VERAPAMIL HYDROCHLORIDE
     Indication: HYPERTENSION
     Dosage: 120 MG, QD
     Route: 048
  7. METFORMIN [Concomitant]
     Active Substance: METFORMIN HYDROCHLORIDE
     Indication: DIABETES MELLITUS
     Dosage: 1000 MG, BID
     Route: 048
  8. LOVASTATIN. [Concomitant]
     Active Substance: LOVASTATIN
     Indication: BLOOD CHOLESTEROL INCREASED
     Dosage: 20 MG, QD
     Route: 048

REACTIONS (1)
  - Visual impairment [Recovered/Resolved]
